FAERS Safety Report 4272020-1 (Version None)
Quarter: 2004Q1

REPORT INFORMATION
  Report Type: 
  Country: None (occurrence: None)
  Receive Date: 20040113
  Receipt Date: 20031222
  Transmission Date: 20041129
  Serious: Yes (Death, Other)
  Sender: FDA-Public Use
  Company Number: JP_031202324

PATIENT
  Age: 78 Year
  Sex: Male

DRUGS (2)
  1. GEMZAR [Suspect]
     Indication: LUNG ADENOCARCINOMA STAGE III
  2. DOCETAXEL [Concomitant]

REACTIONS (4)
  - DRUG EFFECT DECREASED [None]
  - INTERSTITIAL LUNG DISEASE [None]
  - PYOTHORAX [None]
  - RESPIRATORY DISORDER [None]
